FAERS Safety Report 25399158 (Version 1)
Quarter: 2025Q2

REPORT INFORMATION
  Report Type: Report from Study
  Country: US (occurrence: US)
  Receive Date: 20250605
  Receipt Date: 20250605
  Transmission Date: 20250717
  Serious: No
  Sender: SANDOZ
  Company Number: US-002147023-NVSC2022US238681

PATIENT
  Age: 13 Year
  Sex: Male

DRUGS (2)
  1. OMNITROPE [Suspect]
     Active Substance: SOMATROPIN
     Indication: Growth hormone deficiency
     Dosage: 1.5 MG, QD, 10 MG/1.5 ML SOLUTION FOR INJECTION IN CARTRIDGE
     Route: 058
     Dates: start: 20221014
  2. OMNITROPE [Suspect]
     Active Substance: SOMATROPIN
     Indication: Growth hormone deficiency
     Dosage: 1.5 MG, QD, 10 MG/1.5 ML SOLUTION FOR INJECTION IN CARTRIDGE
     Route: 058
     Dates: start: 20221014

REACTIONS (2)
  - Injection site pain [Unknown]
  - Device breakage [Unknown]

NARRATIVE: CASE EVENT DATE: 20221015
